FAERS Safety Report 6875692-8 (Version None)
Quarter: 2010Q3

REPORT INFORMATION
  Report Type: 
  Country: None (occurrence: None)
  Receive Date: 20100727
  Receipt Date: 20071024
  Transmission Date: 20110219
  Serious: Yes (Hospitalization, Other)
  Sender: FDA-Public Use
  Company Number: US-PFIZER INC-2006125855

PATIENT
  Sex: Male

DRUGS (3)
  1. CELEBREX [Suspect]
     Indication: OSTEOARTHRITIS
     Dates: end: 20010501
  2. BEXTRA [Suspect]
     Indication: OSTEOARTHRITIS
     Dosage: `
     Route: 048
     Dates: start: 20040101
  3. VIOXX [Suspect]
     Indication: OSTEOARTHRITIS
     Dates: start: 20010501

REACTIONS (1)
  - MYOCARDIAL INFARCTION [None]
